FAERS Safety Report 23637505 (Version 1)
Quarter: 2024Q1

REPORT INFORMATION
  Report Type: Other
  Country: CN (occurrence: CN)
  Receive Date: 20240315
  Receipt Date: 20240315
  Transmission Date: 20240409
  Serious: Yes (Hospitalization)
  Sender: FDA-Public Use
  Company Number: CN-GE HEALTHCARE-2024CSU002454

PATIENT
  Age: 54 Year
  Sex: Male
  Weight: 67 kg

DRUGS (2)
  1. OMNIPAQUE [Suspect]
     Active Substance: IOHEXOL
     Indication: Computerised tomogram head
     Dosage: 50 ML, TOTAL
     Route: 042
     Dates: start: 20240302, end: 20240302
  2. OMNIPAQUE [Suspect]
     Active Substance: IOHEXOL
     Indication: Arteriogram carotid

REACTIONS (1)
  - Phlebitis [Recovering/Resolving]

NARRATIVE: CASE EVENT DATE: 20240302
